FAERS Safety Report 25839348 (Version 2)
Quarter: 2025Q4

REPORT INFORMATION
  Report Type: Report from Study
  Country: US (occurrence: US)
  Receive Date: 20250924
  Receipt Date: 20251014
  Transmission Date: 20260118
  Serious: No
  Sender: AMGEN
  Company Number: US-AMGEN-USASP2025187517

PATIENT
  Age: 58 Year
  Sex: Male

DRUGS (1)
  1. AIMOVIG [Suspect]
     Active Substance: ERENUMAB-AOOE
     Indication: Migraine
     Dosage: 70 MILLIGRAM, QMO (UNSCUCESSFUL ATTEMPT)
     Route: 065
     Dates: start: 20250912

REACTIONS (5)
  - Accidental exposure to product [Unknown]
  - Injection site indentation [Unknown]
  - Device difficult to use [Unknown]
  - Device use error [Unknown]
  - Drug dose omission by device [Unknown]

NARRATIVE: CASE EVENT DATE: 20250912
